FAERS Safety Report 8795102 (Version 2)
Quarter: 2012Q4

REPORT INFORMATION
  Report Type: 
  Country: CH (occurrence: CH)
  Receive Date: 20120917
  Receipt Date: 20121012
  Transmission Date: 20130627
  Serious: Yes (Disabling)
  Sender: FDA-Public Use
  Company Number: CH-GILEAD-2012-0061007

PATIENT
  Age: 37 Year
  Sex: Male

DRUGS (15)
  1. CAYSTON [Suspect]
     Indication: CYSTIC FIBROSIS
     Dosage: 75 mg, TID
     Route: 055
     Dates: start: 20120730, end: 20120814
  2. PULMOZYME [Concomitant]
     Indication: CYSTIC FIBROSIS
  3. ZITHROMAX [Concomitant]
     Indication: CYSTIC FIBROSIS
  4. ATROVENT [Concomitant]
     Indication: CYSTIC FIBROSIS
  5. EPHYNAL                            /00110502/ [Concomitant]
     Indication: CYSTIC FIBROSIS
  6. SUPRADYN                           /01742801/ [Concomitant]
     Indication: CYSTIC FIBROSIS
  7. URSOCHOL [Concomitant]
     Indication: CYSTIC FIBROSIS
  8. OXIS [Concomitant]
     Indication: CYSTIC FIBROSIS
  9. CREON [Concomitant]
     Indication: CYSTIC FIBROSIS
  10. CIPROXIN                           /00697201/ [Concomitant]
     Indication: CYSTIC FIBROSIS
  11. CALCIMAGON                         /00751501/ [Concomitant]
     Indication: CYSTIC FIBROSIS
  12. FLUCONAZOLE [Concomitant]
     Indication: CYSTIC FIBROSIS
  13. SINGULAIR [Concomitant]
     Indication: CYSTIC FIBROSIS
  14. VENTOLIN                           /00139501/ [Concomitant]
     Indication: CYSTIC FIBROSIS
  15. NEXIUM                             /01479302/ [Concomitant]
     Indication: CYSTIC FIBROSIS

REACTIONS (1)
  - Hypersensitivity [Recovered/Resolved]
